FAERS Safety Report 8209487-X (Version None)
Quarter: 2012Q1

REPORT INFORMATION
  Report Type: 
  Country: None (occurrence: None)
  Receive Date: 20120314
  Receipt Date: 20120312
  Transmission Date: 20120608
  Serious: Yes (Other)
  Sender: FDA-Public Use
  Company Number: US-PFIZER INC-2012066205

PATIENT
  Sex: Female
  Weight: 68.027 kg

DRUGS (11)
  1. ASPIRIN [Concomitant]
     Indication: CARDIAC DISORDER
     Dosage: 81 MG, DAILY
  2. ELAVIL [Concomitant]
     Indication: DEPRESSION
     Dosage: 100 MG, DAILY
  3. CHANTIX [Suspect]
     Indication: SMOKING CESSATION THERAPY
     Dosage: UNK
  4. LASIX [Concomitant]
     Indication: FLUID RETENTION
     Dosage: 40 MG, DAILY
  5. AZOR [Concomitant]
     Indication: HYPERTENSION
     Dosage: 10 MG, DAILY
  6. BYSTOLIC [Concomitant]
     Indication: HYPERTENSION
     Dosage: 10 MG, DAILY
  7. CELEBREX [Concomitant]
     Indication: ARTHRITIS
     Dosage: 80 MG, DAILY
  8. XANAX [Concomitant]
     Indication: NERVOUS SYSTEM DISORDER
     Dosage: 5 MG, 3X/DAY
  9. CYMBALTA [Concomitant]
     Indication: DEPRESSION
     Dosage: 60 MG, DAILY
  10. ELAVIL [Concomitant]
     Indication: MUSCLE RELAXANT THERAPY
  11. PLAVIX [Concomitant]
     Indication: BLOOD CHOLESTEROL ABNORMAL
     Dosage: 15 MG, DAILY

REACTIONS (1)
  - CARDIAC FAILURE CONGESTIVE [None]
